FAERS Safety Report 7552571-4 (Version None)
Quarter: 2011Q2

REPORT INFORMATION
  Report Type: 
  Country: None (occurrence: None)
  Receive Date: 20110609
  Receipt Date: 20110531
  Transmission Date: 20111010
  Serious: Yes (Death, Life-Threatening)
  Sender: FDA-Public Use
  Company Number: 2008003320

PATIENT
  Age: 73 Year
  Sex: Male
  Weight: 61 kg

DRUGS (9)
  1. TAXOTERE [Suspect]
     Indication: LUNG SQUAMOUS CELL CARCINOMA STAGE UNSPECIFIED
     Dosage: IV DRIP
     Route: 041
     Dates: start: 20080616, end: 20080826
  2. MUCOSTA (REBAMIPIDE) [Concomitant]
  3. CODEINE PHOSPHATE (CODEINE PHOSPHATE) [Concomitant]
  4. BLOPRESS (CANDESARTAN CILEXETIL) [Concomitant]
  5. LENDORM [Concomitant]
  6. ERLOTINIB HYDROCHLORIDE [Suspect]
     Indication: LUNG SQUAMOUS CELL CARCINOMA STAGE UNSPECIFIED
     Dosage: 150 MG, UID/QD, ORAL
     Route: 048
     Dates: start: 20081118, end: 20081128
  7. LOXOPROFEN (LOXOPROFEN) [Concomitant]
  8. BIO THREE (CLOSTRIDIUM BUTYRICUM, LACTOBACILLUS ACIDOPHILLUS, SACCHARO [Concomitant]
  9. AMLODIPINE [Concomitant]

REACTIONS (5)
  - CEREBRAL INFARCTION [None]
  - ARTERIOSCLEROSIS CORONARY ARTERY [None]
  - INTERSTITIAL LUNG DISEASE [None]
  - DISSEMINATED INTRAVASCULAR COAGULATION [None]
  - BRONCHOPNEUMONIA [None]
